FAERS Safety Report 14712819 (Version 2)
Quarter: 2018Q3

REPORT INFORMATION
  Report Type: Spontaneous
  Country: US (occurrence: US)
  Receive Date: 20180404
  Receipt Date: 20180918
  Transmission Date: 20181010
  Serious: Yes (Other)
  Sender: FDA-Public Use
  Company Number: US-CIPLA LTD.-2017US12725

PATIENT

DRUGS (8)
  1. SERTRALINE [Suspect]
     Active Substance: SERTRALINE HYDROCHLORIDE
     Indication: PANIC ATTACK
     Dosage: 12.5 MG, (HALF TABLET OF 25 MG)
     Route: 048
     Dates: start: 201609, end: 201610
  2. SERTRALINE [Suspect]
     Active Substance: SERTRALINE HYDROCHLORIDE
     Dosage: 25 MG, ONE TABLET
     Route: 048
     Dates: start: 201610, end: 201611
  3. VITAMIN D3 [Concomitant]
     Active Substance: CHOLECALCIFEROL
     Indication: BONE DISORDER
     Dosage: UNK
     Route: 065
  4. MULTI VITAMINS [Concomitant]
     Active Substance: VITAMINS
     Indication: PRODUCT USED FOR UNKNOWN INDICATION
     Dosage: UNK
     Route: 065
  5. SERTRALINE [Suspect]
     Active Substance: SERTRALINE HYDROCHLORIDE
     Dosage: 37.5 MG, ONE AND HALF TABLET OF 25MG
     Route: 048
     Dates: start: 201611, end: 201705
  6. METHIMAZOLE. [Concomitant]
     Active Substance: METHIMAZOLE
     Indication: BASEDOW^S DISEASE
     Dosage: 2.5 MG, EVERY 3?4 DAYS OR AS AND WHEN NEEDED
     Route: 065
  7. SERTRALINE [Suspect]
     Active Substance: SERTRALINE HYDROCHLORIDE
     Indication: ANXIETY
     Dosage: UNK
     Route: 048
     Dates: start: 201609
  8. SERTRALINE [Suspect]
     Active Substance: SERTRALINE HYDROCHLORIDE
     Dosage: 12.5 MG, LOWEST DOSE, TAPERED
     Route: 048
     Dates: end: 20180313

REACTIONS (17)
  - Dyspepsia [Recovering/Resolving]
  - Impaired quality of life [Unknown]
  - Drug administration error [Unknown]
  - Feeding disorder [Recovering/Resolving]
  - Constipation [Not Recovered/Not Resolved]
  - Condition aggravated [Unknown]
  - Heart rate decreased [Recovering/Resolving]
  - Weight increased [Recovering/Resolving]
  - Hyperhidrosis [Not Recovered/Not Resolved]
  - Blood cholesterol increased [Recovering/Resolving]
  - Drug ineffective [Unknown]
  - Blood glucose increased [Recovering/Resolving]
  - Impaired gastric emptying [Not Recovered/Not Resolved]
  - Astigmatism [Recovered/Resolved]
  - Blood pressure abnormal [Recovering/Resolving]
  - Vision blurred [Not Recovered/Not Resolved]
  - Abdominal distension [Recovering/Resolving]

NARRATIVE: CASE EVENT DATE: 2016
